FAERS Safety Report 8462098-3 (Version None)
Quarter: 2012Q2

REPORT INFORMATION
  Report Type: 
  Country: None (occurrence: None)
  Receive Date: 20120625
  Receipt Date: 20120614
  Transmission Date: 20120825
  Serious: Yes (Hospitalization)
  Sender: FDA-Public Use
  Company Number: US-JNJFOC-20120520845

PATIENT
  Sex: Female

DRUGS (2)
  1. REMICADE [Suspect]
     Indication: RHEUMATOID ARTHRITIS
     Route: 042
     Dates: start: 20100101, end: 20120101
  2. REMICADE [Suspect]
     Route: 042

REACTIONS (3)
  - MEMORY IMPAIRMENT [None]
  - SEPSIS [None]
  - URINARY TRACT INFECTION [None]
